FAERS Safety Report 10037160 (Version 1)
Quarter: 2014Q1

REPORT INFORMATION
  Report Type: Spontaneous
  Country: GB (occurrence: None)
  Receive Date: 20140324
  Receipt Date: 20140324
  Transmission Date: 20141002
  Serious: Yes (Other)
  Sender: FDA-Public Use
  Company Number: 2014AP001976

PATIENT
  Age: 77 Year
  Sex: Female

DRUGS (2)
  1. ALENDRONIC ACID  (ALENDRONIC ACID) [Suspect]
     Indication: PRODUCT USED FOR UNKNOWN INDICATION
     Dates: start: 20100205
  2. ACE INHIBITORS (ACE INHIBITORS) [Concomitant]

REACTIONS (1)
  - Alopecia areata [None]
